FAERS Safety Report 6349844-X (Version None)
Quarter: 2009Q3

REPORT INFORMATION
  Report Type: 
  Country: None (occurrence: None)
  Receive Date: 20090911
  Receipt Date: 20090904
  Transmission Date: 20100115
  Serious: Yes (Other)
  Sender: FDA-Public Use
  Company Number: PHHY2008DE32236

PATIENT
  Age: 75 Year
  Sex: Male

DRUGS (10)
  1. EXELON [Suspect]
     Indication: PARKINSON'S DISEASE
     Dosage: 4.6 MG/24 HOUR
     Route: 062
     Dates: start: 20081101
  2. EXELON [Suspect]
     Dosage: UNK
     Route: 048
     Dates: start: 20080901, end: 20081101
  3. LEVODOPA [Concomitant]
     Dosage: 300 MG
  4. DOPADURA C [Concomitant]
     Dosage: 100 MG
  5. SALAGEN [Concomitant]
     Dosage: 5 MG
  6. AMANTADINE HCL [Concomitant]
  7. PRAZSOIN HCL [Concomitant]
  8. AMLODIPINE [Concomitant]
  9. SIMVASTATIN [Concomitant]
  10. ASPIRIN [Concomitant]

REACTIONS (2)
  - GENERAL PHYSICAL HEALTH DETERIORATION [None]
  - HALLUCINATION [None]
